FAERS Safety Report 8792204 (Version 1)
Quarter: 2012Q4

REPORT INFORMATION
  Report Type: Report from Study
  Country: US (occurrence: US)
  Receive Date: 20120918
  Receipt Date: 20120918
  Transmission Date: 20130627
  Serious: No
  Sender: FDA-Public Use
  Company Number: US-VERTEX PHARMACEUTICAL INC.-AE-2012-010919

PATIENT
  Age: 56 Year
  Sex: Male
  Weight: 75 kg

DRUGS (10)
  1. VX-950 [Suspect]
     Indication: HEPATITIS C
     Dosage: 750 mg, tid
     Route: 048
  2. RIBAPAK [Concomitant]
     Indication: HEPATITIS C
     Dosage: 1000 mg, qd
  3. PEGASYS [Concomitant]
     Indication: HEPATITIS C
  4. ACETAMINOPHEN [Concomitant]
  5. TRAZODONE [Concomitant]
  6. NAPROXEN [Concomitant]
  7. PHENERGAN [Concomitant]
  8. LORTAB [Concomitant]
  9. ACYCLOVIR [Concomitant]
  10. MULTIVITAMINS [Concomitant]

REACTIONS (11)
  - Photosensitivity reaction [Unknown]
  - Insomnia [Unknown]
  - Vision blurred [Unknown]
  - Injection site erythema [Unknown]
  - Temperature intolerance [Unknown]
  - Asthenia [Unknown]
  - Fatigue [Unknown]
  - Rash [Unknown]
  - Proctalgia [Unknown]
  - Dysgeusia [Unknown]
  - Nausea [Unknown]
